FAERS Safety Report 11824123 (Version 1)
Quarter: 2015Q4

REPORT INFORMATION
  Report Type: Spontaneous
  Country: BR (occurrence: BR)
  Receive Date: 20151210
  Receipt Date: 20151210
  Transmission Date: 20160305
  Serious: Yes (Other)
  Sender: FDA-Public Use
  Company Number: BR-BRISTOL-MYERS SQUIBB COMPANY-BMS-2015-085823

PATIENT
  Sex: Female
  Weight: 55 kg

DRUGS (10)
  1. GLIFAGE XR [Suspect]
     Active Substance: METFORMIN HYDROCHLORIDE
     Dosage: UNK
     Route: 048
     Dates: start: 201510
  2. TECTA [Concomitant]
     Active Substance: PANTOPRAZOLE MAGNESIUM
     Indication: GASTROINTESTINAL DISORDER
     Dosage: 40 MG, UNK
     Route: 065
     Dates: start: 2012
  3. SELOZOK [Concomitant]
     Active Substance: METOPROLOL SUCCINATE
     Indication: VASCULAR GRAFT
     Dosage: 100 MG, UNK
     Route: 065
  4. GLIFAGE XR [Suspect]
     Active Substance: METFORMIN HYDROCHLORIDE
     Indication: BLOOD GLUCOSE INCREASED
     Dosage: 1500 MG, TID
     Route: 048
     Dates: start: 2010, end: 2014
  5. DIAMICRON [Concomitant]
     Active Substance: GLICLAZIDE
     Dosage: UNK
     Route: 065
     Dates: start: 2010
  6. PROLIV                             /06839901/ [Concomitant]
     Indication: DYSBACTERIOSIS
     Dosage: UNK
     Route: 065
     Dates: start: 2013
  7. VASTAREL [Concomitant]
     Active Substance: TRIMETAZIDINE DIHYDROCHLORIDE
     Indication: VASCULAR GRAFT
     Dosage: UNK
     Route: 065
     Dates: start: 2000
  8. LIPITOR [Concomitant]
     Active Substance: ATORVASTATIN CALCIUM
     Indication: VASCULAR GRAFT
     Dosage: 20 MG, UNK
     Route: 065
  9. NAPRIX [Concomitant]
     Active Substance: RAMIPRIL
     Indication: CARDIAC DISORDER
     Dosage: UNK
     Route: 065
     Dates: start: 2010
  10. PURAN [Concomitant]
     Active Substance: LEVOTHYROXINE SODIUM
     Indication: THYROID DISORDER
     Dosage: UNK
     Route: 065
     Dates: start: 2011

REACTIONS (2)
  - Diarrhoea [Not Recovered/Not Resolved]
  - Diabetes mellitus [Not Recovered/Not Resolved]

NARRATIVE: CASE EVENT DATE: 2000
